FAERS Safety Report 4728506-6 (Version None)
Quarter: 2005Q3

REPORT INFORMATION
  Report Type: 
  Country: None (occurrence: None)
  Receive Date: 20050729
  Receipt Date: 20050124
  Transmission Date: 20060218
  Serious: No
  Sender: FDA-Public Use
  Company Number: US-GLAXOSMITHKLINE-A0541944A

PATIENT
  Age: 82 Year
  Sex: Male
  Weight: 92.7 kg

DRUGS (5)
  1. ZANTAC [Suspect]
     Indication: DRUG USE FOR UNKNOWN INDICATION
     Dosage: 150MG AT NIGHT
     Route: 048
  2. GLUCOPHAGE [Concomitant]
     Dosage: 1000MG TWICE PER DAY
     Route: 048
  3. GLUCOTROL [Concomitant]
     Dosage: 10MG TWICE PER DAY
     Route: 048
  4. AVANDIA [Concomitant]
     Dosage: 4MG TWICE PER DAY
     Route: 048
  5. VITAMIN B-12 [Concomitant]
     Route: 030

REACTIONS (1)
  - VITAMIN B12 DEFICIENCY [None]
